FAERS Safety Report 22600551 (Version 1)
Quarter: 2023Q2

REPORT INFORMATION
  Report Type: Spontaneous
  Country: US (occurrence: None)
  Receive Date: 20230613
  Receipt Date: 20230613
  Transmission Date: 20230721
  Serious: Yes (Life-Threatening, Hospitalization, Disabling, Other)
  Sender: FDA-Public Use
  Company Number: None

PATIENT
  Age: 20 Year
  Sex: Male
  Weight: 71.4 kg

DRUGS (1)
  1. VEDOLIZUMAB [Suspect]
     Active Substance: VEDOLIZUMAB
     Dates: start: 20230201, end: 20230502

REACTIONS (5)
  - Urticaria [None]
  - Clostridium difficile infection [None]
  - Haemorrhagic vasculitis [None]
  - Purpura [None]
  - Contusion [None]

NARRATIVE: CASE EVENT DATE: 20230520
